FAERS Safety Report 4782199-0 (Version None)
Quarter: 2005Q3

REPORT INFORMATION
  Report Type: 
  Country: None (occurrence: None)
  Receive Date: 20050927
  Receipt Date: 20050602
  Transmission Date: 20060218
  Serious: No
  Sender: FDA-Public Use
  Company Number: US_0412108805

PATIENT
  Age: 9 Year
  Sex: Female
  Weight: 25 kg

DRUGS (2)
  1. STRATTERA [Suspect]
     Indication: ATTENTION DEFICIT/HYPERACTIVITY DISORDER
     Dosage: 25 MG
     Dates: start: 20030801
  2. KEFLEX [Suspect]
     Indication: PHARYNGITIS STREPTOCOCCAL
     Dosage: 5 ML/2 DAY
     Dates: start: 20041105, end: 20041109

REACTIONS (6)
  - DRUG INTERACTION [None]
  - FEELING JITTERY [None]
  - INSOMNIA [None]
  - MIDDLE INSOMNIA [None]
  - PHARYNGITIS STREPTOCOCCAL [None]
  - SLEEP WALKING [None]
